FAERS Safety Report 9385144 (Version 2)
Quarter: 2013Q3

REPORT INFORMATION
  Report Type: Spontaneous
  Country: US (occurrence: US)
  Receive Date: 20130705
  Receipt Date: 20130720
  Transmission Date: 20140515
  Serious: Yes (Other)
  Sender: FDA-Public Use
  Company Number: US-AMGEN-USASP2013046874

PATIENT
  Age: 85 Year
  Sex: Male
  Weight: 96.15 kg

DRUGS (5)
  1. PROLIA [Suspect]
     Indication: OSTEOPOROSIS
     Dosage: 60 MG, ONCE
     Route: 058
     Dates: start: 20130417
  2. ALLOPURINOL [Concomitant]
  3. ATORVASTATIN [Concomitant]
  4. VITAMIN D                          /00107901/ [Concomitant]
  5. PROTONIX [Concomitant]

REACTIONS (2)
  - Blood parathyroid hormone increased [Recovering/Resolving]
  - Blood calcium decreased [Recovered/Resolved]
